FAERS Safety Report 21533271 (Version 5)
Quarter: 2022Q4

REPORT INFORMATION
  Report Type: Spontaneous
  Country: US (occurrence: US)
  Receive Date: 20221101
  Receipt Date: 20221203
  Transmission Date: 20230113
  Serious: Yes (Death, Hospitalization, Other)
  Sender: FDA-Public Use
  Company Number: US-UNITED THERAPEUTICS-UNT-2022-021927

PATIENT
  Sex: Male
  Weight: 95.238 kg

DRUGS (11)
  1. TYVASO [Suspect]
     Active Substance: TREPROSTINIL
     Indication: Pulmonary arterial hypertension
     Dosage: UNK
     Dates: start: 20220919, end: 20221118
  2. TYVASO [Suspect]
     Active Substance: TREPROSTINIL
     Dosage: 18 ?G, QID
     Dates: start: 202209, end: 2022
  3. TYVASO [Suspect]
     Active Substance: TREPROSTINIL
     Dosage: 24 ?G, QID
     Dates: start: 2022, end: 2022
  4. TYVASO [Suspect]
     Active Substance: TREPROSTINIL
     Dosage: 30 ?G
     Dates: start: 2022, end: 2022
  5. TYVASO [Suspect]
     Active Substance: TREPROSTINIL
     Dosage: 18 ?G, QID
     Dates: start: 2022, end: 2022
  6. TYVASO [Suspect]
     Active Substance: TREPROSTINIL
     Dosage: 24 ?G, QID
     Dates: start: 2022, end: 2022
  7. TYVASO [Suspect]
     Active Substance: TREPROSTINIL
     Dosage: 18-72 ?G, QID
     Dates: start: 2022, end: 2022
  8. TYVASO [Suspect]
     Active Substance: TREPROSTINIL
     Dosage: 30 ?G
     Dates: start: 2022
  9. TYVASO [Suspect]
     Active Substance: TREPROSTINIL
     Dosage: 24 ?G, QID
     Dates: start: 2022
  10. LASIX [Suspect]
     Active Substance: FUROSEMIDE
     Indication: Product used for unknown indication
     Dosage: UNK
     Route: 065
     Dates: end: 2022
  11. ELIQUIS [Concomitant]
     Active Substance: APIXABAN
     Indication: Product used for unknown indication
     Dosage: UNK
     Route: 065

REACTIONS (17)
  - General physical health deterioration [Fatal]
  - Atrial fibrillation [Unknown]
  - Cardiac failure [Unknown]
  - Dyspnoea [Not Recovered/Not Resolved]
  - Fall [Recovered/Resolved]
  - Fluid retention [Unknown]
  - Dizziness [Unknown]
  - Renal impairment [Unknown]
  - Presyncope [Unknown]
  - Diarrhoea [Unknown]
  - Cough [Not Recovered/Not Resolved]
  - Headache [Unknown]
  - Weight increased [Unknown]
  - Upper respiratory tract infection [Unknown]
  - Oxygen consumption increased [Unknown]
  - Dry throat [Unknown]
  - Vomiting [Not Recovered/Not Resolved]

NARRATIVE: CASE EVENT DATE: 20220101
